FAERS Safety Report 9783451 (Version 1)
Quarter: 2013Q4

REPORT INFORMATION
  Report Type: Spontaneous
  Country: US (occurrence: None)
  Receive Date: 20131223
  Receipt Date: 20131223
  Transmission Date: 20140711
  Serious: Yes (Other)
  Sender: FDA-Public Use
  Company Number: 201312044

PATIENT
  Sex: Male

DRUGS (1)
  1. TESTOPEL [Suspect]
     Indication: BLOOD TESTOSTERONE DECREASED
     Route: 058
     Dates: start: 2013, end: 2013

REACTIONS (3)
  - Implant site inflammation [None]
  - Implant site pain [None]
  - Patient-device incompatibility [None]
